FAERS Safety Report 12500338 (Version 1)
Quarter: 2016Q2

REPORT INFORMATION
  Report Type: Spontaneous
  Country: US (occurrence: US)
  Receive Date: 20160627
  Receipt Date: 20160627
  Transmission Date: 20160815
  Serious: Yes (Other)
  Sender: FDA-Public Use
  Company Number: US-PFIZER INC-2016015451

PATIENT
  Age: 66 Year
  Sex: Female

DRUGS (1)
  1. KETAMINE HCL [Suspect]
     Active Substance: KETAMINE HYDROCHLORIDE
     Dosage: UNK
     Dates: start: 20130306

REACTIONS (4)
  - Blood pressure decreased [Unknown]
  - Drug hypersensitivity [Unknown]
  - Hallucination [Unknown]
  - Heart rate decreased [Unknown]
